FAERS Safety Report 11171214 (Version 1)
Quarter: 2015Q2

REPORT INFORMATION
  Report Type: Spontaneous
  Country: US (occurrence: US)
  Receive Date: 20150608
  Receipt Date: 20150608
  Transmission Date: 20150821
  Serious: No
  Sender: FDA-Public Use
  Company Number: US-DRREDDYS-USA/USA/15/0047177

PATIENT
  Age: 71 Year
  Sex: Female

DRUGS (2)
  1. MUCINEX ALLERGY [Suspect]
     Active Substance: FEXOFENADINE HYDROCHLORIDE
     Indication: ASTHMA
     Route: 065
  2. MUCINEX EXPECTORANT [Concomitant]
     Indication: ASTHMA
     Dosage: 600 MG OR 1200 MG ONCE OR TWICE DAILY
     Route: 065

REACTIONS (2)
  - Product packaging issue [Unknown]
  - Product package associated injury [Recovered/Resolved]
